FAERS Safety Report 19481166 (Version 1)
Quarter: 2021Q2

REPORT INFORMATION
  Report Type: Spontaneous
  Country: US (occurrence: US)
  Receive Date: 20210630
  Receipt Date: 20210630
  Transmission Date: 20210717
  Serious: No
  Sender: FDA-Public Use
  Company Number: None

PATIENT
  Age: 72 Year
  Sex: Male

DRUGS (2)
  1. CIALIS [Suspect]
     Active Substance: TADALAFIL
     Indication: BENIGN PROSTATIC HYPERPLASIA
     Dosage: ?          QUANTITY:90;?
     Route: 048
     Dates: start: 20190909, end: 20190909
  2. VIT D [Concomitant]
     Active Substance: VITAMIN D NOS

REACTIONS (3)
  - Product quality issue [None]
  - Burn oral cavity [None]
  - Product size issue [None]

NARRATIVE: CASE EVENT DATE: 20190909
